FAERS Safety Report 6403073-X (Version None)
Quarter: 2009Q4

REPORT INFORMATION
  Report Type: 
  Country: None (occurrence: None)
  Receive Date: 20091016
  Receipt Date: 20091008
  Transmission Date: 20100525
  Serious: Yes (Life-Threatening, Other)
  Sender: FDA-Public Use
  Company Number: FR-BAYER-200935024GPV

PATIENT
  Age: 54 Year
  Sex: Male

DRUGS (6)
  1. CIFLOX [Suspect]
     Indication: ANTIBIOTIC PROPHYLAXIS
     Route: 042
     Dates: start: 20070708, end: 20070708
  2. SODIC PIPERACILLINE [Concomitant]
     Indication: ANTIBIOTIC PROPHYLAXIS
     Route: 042
     Dates: start: 20070708, end: 20070708
  3. TARGOCID [Concomitant]
     Indication: ANTIBIOTIC PROPHYLAXIS
     Route: 042
     Dates: start: 20070708, end: 20070708
  4. THIOPENTAL SODIUM [Concomitant]
     Indication: ANAESTHESIA
     Route: 042
     Dates: start: 20070708, end: 20070708
  5. NIMBEX [Concomitant]
     Indication: DRUG USE FOR UNKNOWN INDICATION
     Route: 042
     Dates: start: 20070708, end: 20070708
  6. SUFENTANIL CITRATE [Concomitant]
     Indication: PAIN
     Route: 042
     Dates: start: 20070708, end: 20070708

REACTIONS (1)
  - CIRCULATORY COLLAPSE [None]
